FAERS Safety Report 6902546-0 (Version None)
Quarter: 2010Q3

REPORT INFORMATION
  Report Type: 
  Country: None (occurrence: None)
  Receive Date: 20100730
  Receipt Date: 20100721
  Transmission Date: 20110219
  Serious: Yes (Hospitalization)
  Sender: FDA-Public Use
  Company Number: 2010AC000480

PATIENT
  Age: 53 Year
  Sex: Male

DRUGS (5)
  1. DIGOXIN [Suspect]
     Dosage: 0.125 MG;QD;PO
     Route: 048
     Dates: start: 20080128
  2. COUMADIN [Concomitant]
  3. MORPHINE [Concomitant]
  4. ACETAMINOPHEN [Concomitant]
  5. VICODIN [Concomitant]

REACTIONS (13)
  - ABDOMINAL PAIN [None]
  - ALANINE AMINOTRANSFERASE INCREASED [None]
  - ASPARTATE AMINOTRANSFERASE INCREASED [None]
  - BACK PAIN [None]
  - BLOOD ALKALINE PHOSPHATASE INCREASED [None]
  - DISCOMFORT [None]
  - DIZZINESS [None]
  - ECONOMIC PROBLEM [None]
  - FLANK PAIN [None]
  - HAEMATURIA [None]
  - NAUSEA [None]
  - PAIN [None]
  - VOMITING [None]
